FAERS Safety Report 8028867-9 (Version None)
Quarter: 2012Q1

REPORT INFORMATION
  Report Type: 
  Country: None (occurrence: None)
  Receive Date: 20120106
  Receipt Date: 20120104
  Transmission Date: 20120608
  Serious: Yes (Death)
  Sender: FDA-Public Use
  Company Number: US-GLAXOSMITHKLINE-A0948831A

PATIENT
  Age: 66 Year
  Sex: Male

DRUGS (8)
  1. OXYCONTIN [Concomitant]
  2. CARAFATE [Concomitant]
  3. ZOFRAN [Suspect]
     Indication: PROPHYLAXIS OF NAUSEA AND VOMITING
     Dosage: 8MG THREE TIMES PER DAY
     Route: 048
     Dates: start: 20101001
  4. METOPROLOL SUCCINATE [Concomitant]
  5. LEVOTHYROXINE SODIUM [Concomitant]
  6. OXYCODONE HCL [Concomitant]
  7. CHERATUSSIN [Concomitant]
  8. PRIMIDONE [Concomitant]

REACTIONS (1)
  - NEOPLASM MALIGNANT [None]
